FAERS Safety Report 16570386 (Version 1)
Quarter: 2019Q3

REPORT INFORMATION
  Report Type: Spontaneous
  Country: GB (occurrence: GB)
  Receive Date: 20190715
  Receipt Date: 20190715
  Transmission Date: 20191004
  Serious: Yes (Other)
  Sender: FDA-Public Use
  Company Number: GB-TEVA-2019-GB-1077711

PATIENT
  Age: 79 Year
  Sex: Female

DRUGS (2)
  1. DOSULEPIN HYDROCHLORIDE [Concomitant]
     Active Substance: DOTHIEPIN HYDROCHLORIDE
     Route: 065
  2. METOCLOPRAMIDE. [Suspect]
     Active Substance: METOCLOPRAMIDE
     Indication: NAUSEA
     Dosage: 30 MILLIGRAM DAILY;
     Route: 065

REACTIONS (7)
  - Tardive dyskinesia [Recovering/Resolving]
  - Tremor [Recovered/Resolved]
  - Akathisia [Recovering/Resolving]
  - Withdrawal syndrome [Recovering/Resolving]
  - Resting tremor [Recovered/Resolved]
  - Postural tremor [Recovered/Resolved]
  - Parkinsonism [Recovering/Resolving]
